FAERS Safety Report 14732175 (Version 4)
Quarter: 2019Q1

REPORT INFORMATION
  Report Type: Report from Study
  Country: None (occurrence: US)
  Receive Date: 20180409
  Receipt Date: 20190319
  Transmission Date: 20190417
  Serious: Yes (Other)
  Sender: FDA-Public Use
  Company Number: US-ABBVIE-18K-163-2305719-00

PATIENT
  Age: 79 Year
  Sex: Male
  Weight: 68.1 kg

DRUGS (1)
  1. HUMIRA [Suspect]
     Active Substance: ADALIMUMAB
     Indication: CROHN^S DISEASE
     Route: 058
     Dates: start: 2008

REACTIONS (8)
  - Squamous cell carcinoma of skin [Recovered/Resolved]
  - Abnormal loss of weight [Not Recovered/Not Resolved]
  - Fall [Not Recovered/Not Resolved]
  - Polyp [Unknown]
  - Skin mass [Recovered/Resolved]
  - Pneumonia [Unknown]
  - Skin cancer [Recovering/Resolving]
  - Heavy exposure to ultraviolet light [Unknown]

NARRATIVE: CASE EVENT DATE: 2018
